FAERS Safety Report 6163570-1 (Version None)
Quarter: 2009Q2

REPORT INFORMATION
  Report Type: 
  Country: None (occurrence: None)
  Receive Date: 20090420
  Receipt Date: 20090420
  Transmission Date: 20091009
  Serious: No
  Sender: FDA-Public Use
  Company Number: None

PATIENT
  Age: 49 Year
  Sex: Male
  Weight: 90.7194 kg

DRUGS (2)
  1. ALPRAZOLAM [Suspect]
     Indication: ANXIETY
     Dosage: 1MG 3TIMES A DAY PO
     Route: 048
     Dates: start: 20081105, end: 20090422
  2. ALPRAZOLAM [Suspect]
     Indication: INSOMNIA
     Dosage: 1MG 3TIMES A DAY PO
     Route: 048
     Dates: start: 20081105, end: 20090422

REACTIONS (5)
  - CONVULSION [None]
  - DRUG EFFECT DECREASED [None]
  - DRUG INEFFECTIVE [None]
  - NO THERAPEUTIC RESPONSE [None]
  - PRODUCT SUBSTITUTION ISSUE [None]
